FAERS Safety Report 23801651 (Version 1)
Quarter: 2024Q2

REPORT INFORMATION
  Report Type: Report from Study
  Country: US (occurrence: US)
  Receive Date: 20240501
  Receipt Date: 20240501
  Transmission Date: 20240716
  Serious: No
  Sender: FDA-Public Use
  Company Number: US-ALXN-202404USA001788US

PATIENT
  Sex: Male

DRUGS (1)
  1. STRENSIQ [Suspect]
     Active Substance: ASFOTASE ALFA
     Indication: Product used for unknown indication
     Dosage: 160 MILLIGRAM, TIW
     Route: 065

REACTIONS (3)
  - Pain [Recovered/Resolved]
  - Lethargy [Recovered/Resolved]
  - Muscular weakness [Unknown]
